FAERS Safety Report 7743685-4 (Version None)
Quarter: 2011Q3

REPORT INFORMATION
  Report Type: 
  Country: None (occurrence: None)
  Receive Date: 20110912
  Receipt Date: 20110901
  Transmission Date: 20111222
  Serious: Yes (Hospitalization, Other)
  Sender: FDA-Public Use
  Company Number: US-ELI_LILLY_AND_COMPANY-US201109000726

PATIENT
  Age: 21 Year
  Sex: Female

DRUGS (12)
  1. LANTUS [Concomitant]
     Dosage: UNK
  2. BENZTROPINE MESYLATE [Concomitant]
     Dosage: UNK
  3. LIPITOR [Concomitant]
     Dosage: UNK
  4. METFORMIN HCL [Concomitant]
     Dosage: UNK
  5. LISINOPRIL [Concomitant]
     Dosage: UNK
  6. ALBUTEROL SULFATE AUTOHALER [Concomitant]
     Dosage: UNK
  7. LAMICTAL [Concomitant]
     Dosage: UNK
  8. BYSTOLIC [Concomitant]
     Dosage: UNK
  9. REGLAN [Concomitant]
     Dosage: UNK
  10. HUMALOG [Suspect]
     Indication: TYPE 2 DIABETES MELLITUS
     Dosage: UNK, PRN
     Dates: end: 20110804
  11. CLOZAPINE [Concomitant]
     Dosage: UNK
  12. DEXLANSOPRAZOLE [Concomitant]
     Dosage: UNK

REACTIONS (3)
  - SUICIDE ATTEMPT [None]
  - HYPOGLYCAEMIA [None]
  - INTENTIONAL OVERDOSE [None]
